FAERS Safety Report 10096556 (Version 2)
Quarter: 2014Q2

REPORT INFORMATION
  Report Type: Report from Study
  Country: US (occurrence: US)
  Receive Date: 20140422
  Receipt Date: 20140502
  Transmission Date: 20141212
  Serious: Yes (Other)
  Sender: FDA-Public Use
  Company Number: US-CELGENEUS-163-21880-14043555

PATIENT
  Age: 71 Year
  Sex: Male

DRUGS (2)
  1. REVLIMID [Suspect]
     Indication: PLASMA CELL MYELOMA
     Dosage: 25 MILLIGRAM
     Route: 048
     Dates: start: 20120416, end: 20130128
  2. EPOETIN ALFA [Concomitant]
     Indication: ANAEMIA
     Dosage: 40,000 UNITS
     Route: 065

REACTIONS (1)
  - Myelodysplastic syndrome [Unknown]
